FAERS Safety Report 4948417-0 (Version None)
Quarter: 2006Q1

REPORT INFORMATION
  Report Type: 
  Country: None (occurrence: None)
  Receive Date: 20060313
  Receipt Date: 20060308
  Transmission Date: 20060701
  Serious: Yes (Other)
  Sender: FDA-Public Use
  Company Number: 2006-02-1766

PATIENT
  Age: 4 Month
  Sex: Male

DRUGS (6)
  1. NASONEX [Suspect]
     Indication: LARYNGOMALACIA
     Dosage: 1 BID-1QD, NASAL SPRAY, 1 PUFF BID, NASAL SPRAY, 1 PUFF QD NASAL SPRAY
     Route: 045
     Dates: start: 20060201, end: 20060206
  2. NASONEX [Suspect]
     Indication: LARYNGOMALACIA
     Dosage: 1 BID-1QD, NASAL SPRAY, 1 PUFF BID, NASAL SPRAY, 1 PUFF QD NASAL SPRAY
     Route: 045
     Dates: start: 20060201, end: 20060224
  3. NASONEX [Suspect]
     Indication: LARYNGOMALACIA
     Dosage: 1 BID-1QD, NASAL SPRAY, 1 PUFF BID, NASAL SPRAY, 1 PUFF QD NASAL SPRAY
     Route: 045
     Dates: start: 20060207, end: 20060224
  4. OMEPRAL (OMEPRAZOLE) CAPSULES [Concomitant]
  5. ZYMAFLUOR [Concomitant]
  6. VITAMIN D3 [Concomitant]

REACTIONS (5)
  - APNOEA [None]
  - HYPOTONIA [None]
  - IRRITABILITY [None]
  - LACRIMATION INCREASED [None]
  - PALLOR [None]
